FAERS Safety Report 15126797 (Version 1)
Quarter: 2018Q3

REPORT INFORMATION
  Report Type: Spontaneous
  Country: US (occurrence: US)
  Receive Date: 20180614
  Receipt Date: 20180614
  Transmission Date: 20181010
  Serious: Yes (Other)
  Sender: FDA-Public Use
  Company Number: None

PATIENT
  Age: 28 Year
  Sex: Female
  Weight: 45.36 kg

DRUGS (2)
  1. MIRENA [Suspect]
     Active Substance: LEVONORGESTREL
     Dates: end: 20180411
  2. PRENATAL [Concomitant]
     Active Substance: VITAMINS

REACTIONS (3)
  - Device dislocation [None]
  - Pain [None]
  - Headache [None]

NARRATIVE: CASE EVENT DATE: 20180411
